FAERS Safety Report 5156324-6 (Version None)
Quarter: 2006Q4

REPORT INFORMATION
  Report Type: 
  Country: None (occurrence: None)
  Receive Date: 20061122
  Receipt Date: 20061020
  Transmission Date: 20070319
  Serious: Yes (Death, Hospitalization)
  Sender: FDA-Public Use
  Company Number: JP-JPN-A200604449

PATIENT
  Age: 95 Year
  Sex: Female

DRUGS (16)
  1. VALTREX [Suspect]
     Indication: HERPES ZOSTER
     Dosage: 1000MG THREE TIMES PER DAY
     Route: 048
     Dates: start: 20061016, end: 20061018
  2. MECOBALAMIN [Concomitant]
     Dosage: 4500MG PER DAY
     Route: 048
     Dates: start: 20061016, end: 20061018
  3. MINOCYCLINE HCL [Concomitant]
     Dosage: 100MG PER DAY
     Route: 048
     Dates: start: 20061016, end: 20061018
  4. KENTAN [Concomitant]
     Route: 048
     Dates: start: 20061016, end: 20061018
  5. COMELIAN [Concomitant]
     Dosage: 450MG PER DAY
     Route: 048
     Dates: end: 20061018
  6. UNKNOWN MEDICATION [Concomitant]
     Dosage: 225MG PER DAY
     Route: 048
     Dates: end: 20061019
  7. NORVASC [Concomitant]
     Route: 048
     Dates: end: 20061019
  8. D-ALFA [Concomitant]
     Dosage: .5MCG PER DAY
     Route: 048
     Dates: end: 20061019
  9. PREDNISOLONE [Concomitant]
     Indication: POLYMYALGIA RHEUMATICA
     Route: 048
     Dates: start: 20010801, end: 20061019
  10. NU-LOTAN [Concomitant]
     Dosage: 50MG PER DAY
     Route: 048
     Dates: end: 20061019
  11. MEVALOTIN [Concomitant]
     Dosage: 5MG PER DAY
     Route: 048
     Dates: end: 20061019
  12. ALDACTONE [Concomitant]
     Dosage: 25MG PER DAY
     Route: 048
     Dates: end: 20061019
  13. UNKNOWN MEDICATION [Concomitant]
     Route: 062
     Dates: end: 20061018
  14. ASPIRIN [Concomitant]
     Dosage: 1UNIT PER DAY
     Route: 048
     Dates: start: 20061019, end: 20061019
  15. SOLULACT [Concomitant]
     Dosage: 2000L PER DAY
     Route: 042
     Dates: start: 20061019, end: 20061019
  16. SEISHOKU [Concomitant]
     Dosage: 2000L PER DAY
     Route: 042
     Dates: start: 20061020, end: 20061023

REACTIONS (6)
  - ADRENOCORTICAL STEROID THERAPY [None]
  - ANURIA [None]
  - DYSARTHRIA [None]
  - MOUTH BREATHING [None]
  - RENAL FAILURE ACUTE [None]
  - SHOCK [None]
